FAERS Safety Report 21007582 (Version 1)
Quarter: 2022Q3

REPORT INFORMATION
  Report Type: Spontaneous
  Country: JP (occurrence: JP)
  Receive Date: 20220626
  Receipt Date: 20220626
  Transmission Date: 20221027
  Serious: Yes (Other)
  Sender: FDA-Public Use
  Company Number: JP-NOVARTISPH-NVSJ2021JP009967

PATIENT
  Age: 76 Year
  Sex: Male

DRUGS (4)
  1. AFINITOR [Suspect]
     Active Substance: EVEROLIMUS
     Indication: Pancreatic neuroendocrine tumour
     Dosage: 10 MG
     Route: 048
     Dates: start: 20180904
  2. AFINITOR [Suspect]
     Active Substance: EVEROLIMUS
     Dosage: 5 MG
     Route: 048
     Dates: start: 20190318
  3. AFINITOR [Suspect]
     Active Substance: EVEROLIMUS
     Dosage: 5 MG
     Route: 048
     Dates: start: 20200323
  4. AFINITOR [Suspect]
     Active Substance: EVEROLIMUS
     Dosage: 10 MG
     Route: 048

REACTIONS (6)
  - Interstitial lung disease [Recovered/Resolved]
  - Cough [Unknown]
  - Productive cough [Unknown]
  - Hepatic neoplasm [Unknown]
  - Neoplasm progression [Unknown]
  - Diarrhoea [Unknown]

NARRATIVE: CASE EVENT DATE: 20190218
